FAERS Safety Report 6425358-3 (Version None)
Quarter: 2009Q4

REPORT INFORMATION
  Report Type: 
  Country: None (occurrence: None)
  Receive Date: 20091103
  Receipt Date: 20091029
  Transmission Date: 20100525
  Serious: Yes (Life-Threatening, Hospitalization, Other)
  Sender: FDA-Public Use
  Company Number: A0814414A

PATIENT
  Age: 6 Year
  Sex: Male

DRUGS (2)
  1. LAMICTAL [Suspect]
     Indication: EPILEPSY
     Dosage: 2TABS TWICE PER DAY
     Route: 048
     Dates: start: 20090223
  2. KLONOPIN [Concomitant]

REACTIONS (3)
  - HYPOGAMMAGLOBULINAEMIA [None]
  - PNEUMOCOCCAL SEPSIS [None]
  - PYREXIA [None]
